FAERS Safety Report 21930940 (Version 1)
Quarter: 2023Q1

REPORT INFORMATION
  Report Type: Spontaneous
  Country: US (occurrence: None)
  Receive Date: 20230130
  Receipt Date: 20230130
  Transmission Date: 20230418
  Serious: Yes (Death)
  Sender: FDA-Public Use
  Company Number: None

PATIENT
  Age: 87 Year
  Sex: Male
  Weight: 79.38 kg

DRUGS (14)
  1. ABIRATERONE [Suspect]
     Active Substance: ABIRATERONE
     Indication: Prostate cancer
     Dosage: FREQUENCY : DAILY;?
     Route: 048
     Dates: start: 202212
  2. ENOXAPARIN [Concomitant]
  3. FERROUS GLUCONATE [Concomitant]
  4. HYDRALAZINE [Concomitant]
  5. NORCO [Concomitant]
  6. HYDROXYZINE [Concomitant]
  7. JANUVIA [Concomitant]
  8. MULTIVITAMIN [Concomitant]
  9. CALCIUM [Concomitant]
  10. PREDNISONE [Concomitant]
  11. ROSUVASTATIN [Concomitant]
  12. TAMSULOSIN [Concomitant]
  13. TORSEMIDE [Concomitant]
  14. ZYRTEC [Concomitant]

REACTIONS (1)
  - Death [None]
